FAERS Safety Report 11924577 (Version 1)
Quarter: 2016Q1

REPORT INFORMATION
  Report Type: Report from Study
  Country: GB (occurrence: GB)
  Receive Date: 20160118
  Receipt Date: 20160118
  Transmission Date: 20160526
  Serious: Yes (Hospitalization)
  Sender: FDA-Public Use
  Company Number: GB-JNJFOC-20151225482

PATIENT
  Age: 74 Year
  Sex: Male

DRUGS (1)
  1. STELARA [Suspect]
     Active Substance: USTEKINUMAB
     Indication: PSORIASIS
     Route: 058
     Dates: start: 20131024

REACTIONS (4)
  - Constipation [Unknown]
  - Fall [Unknown]
  - Pneumonia [Unknown]
  - Hip surgery [Unknown]

NARRATIVE: CASE EVENT DATE: 20151127
